FAERS Safety Report 23544868 (Version 1)
Quarter: 2024Q1

REPORT INFORMATION
  Report Type: Report from Study
  Country: US (occurrence: None)
  Receive Date: 20240220
  Receipt Date: 20240220
  Transmission Date: 20240409
  Serious: Yes (Other)
  Sender: FDA-Public Use
  Company Number: 2024A037542

PATIENT
  Sex: Female
  Weight: 86.2 kg

DRUGS (6)
  1. LYNPARZA [Suspect]
     Active Substance: OLAPARIB
     Indication: Ovarian cancer
     Route: 048
     Dates: start: 20240124
  2. SYNTHROID [Concomitant]
     Active Substance: LEVOTHYROXINE SODIUM
  3. IBUPROFEN [Concomitant]
     Active Substance: IBUPROFEN
  4. GABAPENTIN [Concomitant]
     Active Substance: GABAPENTIN
  5. PROCHLORPERAZINE [Concomitant]
     Active Substance: PROCHLORPERAZINE
  6. VITAMIN D3 [Concomitant]
     Active Substance: CHOLECALCIFEROL

REACTIONS (3)
  - Hiccups [Unknown]
  - Dyspnoea [Unknown]
  - Cardiac flutter [Unknown]
